FAERS Safety Report 7576620-2 (Version None)
Quarter: 2011Q2

REPORT INFORMATION
  Report Type: 
  Country: None (occurrence: None)
  Receive Date: 20110628
  Receipt Date: 20110616
  Transmission Date: 20111010
  Serious: Yes (Hospitalization)
  Sender: FDA-Public Use
  Company Number: IT-ELI_LILLY_AND_COMPANY-IT201106002496

PATIENT
  Sex: Male

DRUGS (7)
  1. ZOLOFT [Concomitant]
     Dosage: 1 DF, UNKNOWN
     Route: 048
  2. CIPROFLOXACIN [Concomitant]
     Dosage: 500 MG, BID
     Route: 048
  3. RAMIPRIL [Concomitant]
     Dosage: 2.5 MG, UNKNOWN
     Route: 048
  4. METBAY [Concomitant]
     Dosage: 500 MG, TID
     Route: 048
  5. SODIUM CHLORIDE [Concomitant]
     Dosage: 500 ML, UNK
     Route: 042
  6. EMAGEL [Concomitant]
     Dosage: 3 ML, UNKNOWN
     Route: 042
  7. HUMULIN R [Suspect]
     Indication: HYPERGLYCAEMIA
     Dosage: 100 IU, QD
     Route: 042
     Dates: start: 20110524, end: 20110526

REACTIONS (1)
  - HYPERPYREXIA [None]
